FAERS Safety Report 8252055-4 (Version None)
Quarter: 2012Q2

REPORT INFORMATION
  Report Type: 
  Country: None (occurrence: None)
  Receive Date: 20120402
  Receipt Date: 20110329
  Transmission Date: 20120825
  Serious: No
  Sender: FDA-Public Use
  Company Number: US-ABBOTT-11P-163-0804356-00

PATIENT
  Sex: Male
  Weight: 95.455 kg

DRUGS (2)
  1. LEVOTHYROXINE [Concomitant]
     Indication: HYPOTHYROIDISM
     Dosage: DAILY DOSE:  UNKNOWN
     Route: 065
  2. TESTOSTERONE [Suspect]
     Indication: BLOOD TESTOSTERONE DECREASED
     Dosage: DAILY DOSE: 10 GRAM(S), FREQ: EVERY MORNING
     Route: 062
     Dates: start: 20101201

REACTIONS (1)
  - DRUG INEFFECTIVE [None]
